FAERS Safety Report 6700188-3 (Version None)
Quarter: 2010Q2

REPORT INFORMATION
  Report Type: 
  Country: None (occurrence: None)
  Receive Date: 20100428
  Receipt Date: 20100414
  Transmission Date: 20101027
  Serious: Yes (Hospitalization)
  Sender: FDA-Public Use
  Company Number: US-BAYER-201022680GPV

PATIENT
  Age: 19 Month
  Sex: Male
  Weight: 12 kg

DRUGS (4)
  1. ASPIRIN [Suspect]
     Route: 048
  2. ALBUTEROL [Concomitant]
     Indication: DYSPNOEA
  3. BACITRACIN [Concomitant]
     Indication: BITE
     Route: 061
  4. AMOXICILLIN [Concomitant]
     Indication: BITE

REACTIONS (6)
  - DECREASED ACTIVITY [None]
  - DYSPNOEA [None]
  - METABOLIC ACIDOSIS [None]
  - RESPIRATORY DISTRESS [None]
  - TACHYPNOEA [None]
  - WHEEZING [None]
